FAERS Safety Report 6055370-8 (Version None)
Quarter: 2009Q1

REPORT INFORMATION
  Report Type: 
  Country: None (occurrence: None)
  Receive Date: 20090128
  Receipt Date: 20090115
  Transmission Date: 20090719
  Serious: Yes (Other)
  Sender: FDA-Public Use
  Company Number: CA-PFIZER INC-2008152031

PATIENT

DRUGS (4)
  1. LYRICA [Suspect]
     Indication: NEURALGIA
     Dosage: 300 MG, 2X/DAY
     Route: 048
  2. WARFARIN [Concomitant]
     Dosage: UNK
  3. REMERON [Concomitant]
     Dosage: UNK
  4. TENORMIN [Concomitant]
     Dosage: UNK

REACTIONS (5)
  - DRY EYE [None]
  - DRY MOUTH [None]
  - DRY SKIN [None]
  - EYE PAIN [None]
  - VISION BLURRED [None]
